FAERS Safety Report 7068691-7 (Version None)
Quarter: 2010Q4

REPORT INFORMATION
  Report Type: 
  Country: None (occurrence: None)
  Receive Date: 20101028
  Receipt Date: 20101018
  Transmission Date: 20110411
  Serious: Yes (Other)
  Sender: FDA-Public Use
  Company Number: US-PFIZER INC-2010131634

PATIENT
  Sex: Female

DRUGS (3)
  1. MORPHINE SULFATE [Suspect]
     Dosage: 300 MG, 3X/DAY
  2. MORPHINE SULFATE [Suspect]
     Dosage: 300 MG, 3X/DAY
  3. AZITHROMYCIN [Suspect]
     Dosage: UNK

REACTIONS (8)
  - ASTHENIA [None]
  - DIZZINESS [None]
  - GAIT DISTURBANCE [None]
  - HYPOTENSION [None]
  - OEDEMA PERIPHERAL [None]
  - PRODUCT QUALITY ISSUE [None]
  - SOMNOLENCE [None]
  - THROMBOSIS [None]
